FAERS Safety Report 7241050-X (Version None)
Quarter: 2011Q1

REPORT INFORMATION
  Report Type: 
  Country: None (occurrence: None)
  Receive Date: 20110120
  Receipt Date: 20110120
  Transmission Date: 20110831
  Serious: Yes (Hospitalization, Disabling)
  Sender: FDA-Public Use
  Company Number: None

PATIENT
  Sex: Female
  Weight: 78.6 kg

DRUGS (1)
  1. RANEXA [Suspect]
     Indication: ANGINA PECTORIS
     Dosage: 1000MG BID ORAL
     Route: 048
     Dates: start: 20101215

REACTIONS (6)
  - GAIT DISTURBANCE [None]
  - FALL [None]
  - TREMOR [None]
  - TIC [None]
  - DYSSTASIA [None]
  - CONTUSION [None]
